FAERS Safety Report 4294329-8 (Version None)
Quarter: 2004Q1

REPORT INFORMATION
  Report Type: 
  Country: None (occurrence: None)
  Receive Date: 20040211
  Receipt Date: 20030812
  Transmission Date: 20041129
  Serious: No
  Sender: FDA-Public Use
  Company Number: US-GLAXOSMITHKLINE-A0420832A

PATIENT
  Age: 42 Year
  Sex: Male

DRUGS (3)
  1. LAMICTAL [Suspect]
     Indication: BIPOLAR DISORDER
     Dosage: 125MG PER DAY
     Route: 048
  2. PAXIL [Concomitant]
  3. RISPERDAL [Concomitant]

REACTIONS (1)
  - RASH [None]
